FAERS Safety Report 9272130 (Version 2)
Quarter: 2013Q2

REPORT INFORMATION
  Report Type: Spontaneous
  Country: FR (occurrence: FR)
  Receive Date: 20130506
  Receipt Date: 20130621
  Transmission Date: 20140414
  Serious: Yes (Hospitalization, Other)
  Sender: FDA-Public Use
  Company Number: FR-ASTRAZENECA-2013SE29259

PATIENT
  Age: 32374 Day
  Sex: Female

DRUGS (5)
  1. MOPRAL [Suspect]
     Route: 048
     Dates: end: 20130325
  2. SEROPLEX [Suspect]
     Route: 048
     Dates: end: 20130325
  3. CORDARONE [Suspect]
     Route: 048
     Dates: end: 20130326
  4. ZOFENIL DUO [Suspect]
     Route: 048
     Dates: end: 20130325
  5. KARDEGIC [Concomitant]
     Dosage: LONG LASTING TREATMENT

REACTIONS (4)
  - Urinary retention [Unknown]
  - Hyponatraemia [Recovered/Resolved]
  - Confusional state [Recovered/Resolved]
  - Transaminases increased [Recovered/Resolved]
